FAERS Safety Report 15804946 (Version 14)
Quarter: 2020Q2

REPORT INFORMATION
  Report Type: Report from Study
  Country: CA (occurrence: CA)
  Receive Date: 20190110
  Receipt Date: 20200616
  Transmission Date: 20200713
  Serious: Yes (Hospitalization, Other)
  Sender: FDA-Public Use
  Company Number: CA-BRISTOL-MYERS SQUIBB COMPANY-BMS-2018-049265

PATIENT
  Age: 70 Year
  Sex: Female

DRUGS (1)
  1. ABATACEPT [Suspect]
     Active Substance: ABATACEPT
     Indication: RHEUMATOID ARTHRITIS
     Dosage: 750 MG, Q4WK
     Route: 042
     Dates: start: 20130313

REACTIONS (12)
  - Syncope [Recovered/Resolved]
  - Nasopharyngitis [Recovering/Resolving]
  - Malaise [Unknown]
  - Cystitis [Unknown]
  - Bone pain [Unknown]
  - Chest pain [Recovered/Resolved]
  - Tooth abscess [Recovered/Resolved]
  - Tooth disorder [Unknown]
  - Lower respiratory tract infection [Unknown]
  - Oropharyngeal pain [Recovered/Resolved]
  - Hypertension [Unknown]
  - Infection [Unknown]

NARRATIVE: CASE EVENT DATE: 20191120
